FAERS Safety Report 5153281-3 (Version None)
Quarter: 2006Q4

REPORT INFORMATION
  Report Type: 
  Country: None (occurrence: None)
  Receive Date: 20061116
  Receipt Date: 20061116
  Transmission Date: 20070319
  Serious: Yes (Other)
  Sender: FDA-Public Use
  Company Number: None

PATIENT
  Age: 76 Year
  Sex: Female

DRUGS (6)
  1. PLAVIX  GENERIC [Suspect]
     Indication: CORONARY ARTERIAL STENT INSERTION
     Dosage: 75MG  ORAL 1X/DAY   P.O
     Route: 048
     Dates: start: 20060825, end: 20060929
  2. ASPIRIN [Concomitant]
  3. DIOVAN HCT [Concomitant]
  4. VYTORIN [Concomitant]
  5. TOPROL-XL [Concomitant]
  6. NORVASC [Concomitant]

REACTIONS (3)
  - ANGINA UNSTABLE [None]
  - PLATELET FUNCTION TEST ABNORMAL [None]
  - THERAPEUTIC RESPONSE UNEXPECTED WITH DRUG SUBSTITUTION [None]
